FAERS Safety Report 8238918-4 (Version None)
Quarter: 2012Q1

REPORT INFORMATION
  Report Type: 
  Country: None (occurrence: None)
  Receive Date: 20120327
  Receipt Date: 20120321
  Transmission Date: 20120608
  Serious: Yes (Death)
  Sender: FDA-Public Use
  Company Number: JP-ASTRAZENECA-2012SE19530

PATIENT
  Age: 74 Year
  Sex: Male

DRUGS (5)
  1. MEROPENEM [Suspect]
     Route: 042
  2. VANCOMYCIN [Concomitant]
  3. LINEZOLID [Concomitant]
  4. AMBISOME [Suspect]
     Indication: FUNGAL INFECTION
     Route: 065
     Dates: start: 20120226, end: 20120306
  5. AMBISOME [Suspect]
     Indication: FEBRILE NEUTROPENIA
     Route: 065
     Dates: start: 20120226, end: 20120306

REACTIONS (3)
  - MULTI-ORGAN FAILURE [None]
  - SEPSIS [None]
  - FEBRILE NEUTROPENIA [None]
